FAERS Safety Report 9628252 (Version 2)
Quarter: 2013Q4

REPORT INFORMATION
  Report Type: Spontaneous
  Country: ES (occurrence: ES)
  Receive Date: 20131017
  Receipt Date: 20131104
  Transmission Date: 20140711
  Serious: Yes (Other)
  Sender: FDA-Public Use
  Company Number: ES-009507513-1310ESP006894

PATIENT
  Age: 62 Year
  Sex: Female

DRUGS (4)
  1. SYCREST [Suspect]
     Indication: BIPOLAR DISORDER
     Dosage: 5 MG, BID
     Route: 060
     Dates: start: 20130925, end: 20130925
  2. QUETIAPINE FUMARATE [Concomitant]
  3. LAMICTAL [Concomitant]
     Route: 048
  4. PLENUR [Concomitant]
     Route: 048

REACTIONS (3)
  - Confusional state [Recovered/Resolved]
  - Somnolence [Recovered/Resolved]
  - Hypotension [Recovered/Resolved]
